FAERS Safety Report 5955678-8 (Version None)
Quarter: 2008Q4

REPORT INFORMATION
  Report Type: 
  Country: None (occurrence: None)
  Receive Date: 20081117
  Receipt Date: 20081105
  Transmission Date: 20090506
  Serious: Yes (Death, Hospitalization)
  Sender: FDA-Public Use
  Company Number: IL-ELI_LILLY_AND_COMPANY-IL200811000836

PATIENT
  Sex: Male

DRUGS (3)
  1. ZYPREXA [Suspect]
     Dosage: 30 MG, UNK
     Route: 048
  2. ZYPREXA [Suspect]
     Dosage: 40 MG, UNK
     Route: 048
  3. LITHIUM [Concomitant]

REACTIONS (3)
  - DEATH [None]
  - HOSPITALISATION [None]
  - OVERDOSE [None]
